FAERS Safety Report 20045077 (Version 1)
Quarter: 2021Q4

REPORT INFORMATION
  Report Type: Spontaneous
  Country: US (occurrence: US)
  Receive Date: 20211108
  Receipt Date: 20211108
  Transmission Date: 20220303
  Serious: Yes (Hospitalization)
  Sender: FDA-Public Use
  Company Number: US-ALKERMES INC.-ALK-2021-005669

PATIENT
  Sex: Female

DRUGS (3)
  1. VIVITROL [Suspect]
     Active Substance: NALTREXONE
     Indication: Alcoholism
     Dosage: 380 MILLIGRAM, QMO
     Route: 030
     Dates: start: 202108, end: 202108
  2. VIVITROL [Suspect]
     Active Substance: NALTREXONE
     Dosage: 380 MILLIGRAM, QMO
     Route: 030
  3. NALTREXONE [Suspect]
     Active Substance: NALTREXONE
     Indication: Alcoholism
     Dosage: UNK
     Route: 048

REACTIONS (3)
  - Hospitalisation [Recovered/Resolved]
  - Malaise [Not Recovered/Not Resolved]
  - Alcoholism [Recovered/Resolved]

NARRATIVE: CASE EVENT DATE: 20210101
